FAERS Safety Report 14797790 (Version 1)
Quarter: 2018Q2

REPORT INFORMATION
  Report Type: Spontaneous
  Country: KR (occurrence: KR)
  Receive Date: 20180424
  Receipt Date: 20180424
  Transmission Date: 20180711
  Serious: Yes (Hospitalization, Other)
  Sender: FDA-Public Use
  Company Number: KR-ALVOGEN-2018-ALVOGEN-095944

PATIENT
  Age: 37 Year
  Sex: Female
  Weight: 58 kg

DRUGS (10)
  1. FENTANYL. [Suspect]
     Active Substance: FENTANYL
     Indication: PAIN
     Route: 042
  2. NEFOPAM [Interacting]
     Active Substance: NEFOPAM
     Indication: POSTOPERATIVE ANALGESIA
     Dosage: DRIP
  3. PROPOFOL. [Suspect]
     Active Substance: PROPOFOL
     Indication: ANAESTHESIA
     Dosage: 1 %
  4. PYRIDOSTIGMINE [Concomitant]
     Active Substance: PYRIDOSTIGMINE
     Indication: PRODUCT USED FOR UNKNOWN INDICATION
  5. LIDOCAINE. [Concomitant]
     Active Substance: LIDOCAINE
     Indication: ANAESTHESIA
     Dosage: 2 %
  6. NORMAL SALINE [Concomitant]
     Active Substance: SODIUM CHLORIDE
     Indication: POSTOPERATIVE ANALGESIA
     Dosage: 100 CC
  7. DESFLURANE. [Concomitant]
     Active Substance: DESFLURANE
     Indication: ANAESTHESIA
  8. ROCURONIUM [Concomitant]
     Active Substance: ROCURONIUM BROMIDE
     Indication: ANAESTHESIA
  9. REMIFENTANIL [Concomitant]
     Active Substance: REMIFENTANIL
     Indication: ANAESTHESIA
  10. GLYCOPYRROLATE. [Concomitant]
     Active Substance: GLYCOPYRROLATE
     Indication: PRODUCT USED FOR UNKNOWN INDICATION

REACTIONS (3)
  - Drug interaction [Recovered/Resolved]
  - Anticholinergic syndrome [Recovered/Resolved]
  - Myoclonus [Recovered/Resolved]
